FAERS Safety Report 23788409 (Version 1)
Quarter: 2024Q2

REPORT INFORMATION
  Report Type: Spontaneous
  Country: IT (occurrence: IT)
  Receive Date: 20240426
  Receipt Date: 20240426
  Transmission Date: 20240715
  Serious: Yes (Death)
  Sender: FDA-Public Use
  Company Number: None

PATIENT
  Age: 64 Year
  Sex: Male

DRUGS (1)
  1. XELJANZ [Suspect]
     Active Substance: TOFACITINIB CITRATE
     Indication: Dermatomyositis
     Dosage: 10 MG DAILY
     Route: 048
     Dates: start: 20240216, end: 20240301

REACTIONS (2)
  - Cytomegalovirus oesophagitis [Fatal]
  - Off label use [Unknown]

NARRATIVE: CASE EVENT DATE: 20240301
